FAERS Safety Report 25952647 (Version 1)
Quarter: 2025Q4

REPORT INFORMATION
  Report Type: Spontaneous
  Country: GB (occurrence: GB)
  Receive Date: 20251023
  Receipt Date: 20251023
  Transmission Date: 20260117
  Serious: Yes (Other)
  Sender: ELI LILLY AND COMPANY
  Company Number: GB-MHRA-EMIS-12718-edcc3e0d-cc25-425f-bedc-650082b79e75

PATIENT
  Age: 48 Year
  Sex: Female
  Weight: 112 kg

DRUGS (3)
  1. MOUNJARO [Interacting]
     Active Substance: TIRZEPATIDE
     Indication: Product used for unknown indication
     Dosage: 15 MG, WEEKLY (1/W)
     Route: 058
     Dates: start: 20241001
  2. ESTRADIOL\NORETHINDRONE ACETATE [Interacting]
     Active Substance: ESTRADIOL\NORETHINDRONE ACETATE
     Indication: Product used for unknown indication
     Dosage: 1 DOSAGE FORM, DAILY
     Route: 065
  3. ESTRADIOL\NORETHINDRONE ACETATE [Concomitant]
     Active Substance: ESTRADIOL\NORETHINDRONE ACETATE
     Indication: Product used for unknown indication
     Dosage: UNK, UNKNOWN (CHANGE THE PATCH TWICE A WEEK)
     Route: 065
     Dates: start: 20250606

REACTIONS (1)
  - Drug interaction [Unknown]
